FAERS Safety Report 9722102 (Version 2)
Quarter: 2013Q4

REPORT INFORMATION
  Report Type: Spontaneous
  Country: US (occurrence: US)
  Receive Date: 20131202
  Receipt Date: 20131202
  Transmission Date: 20140711
  Serious: Yes (Hospitalization)
  Sender: FDA-Public Use
  Company Number: US-BIOGENIDEC-2013BI096996

PATIENT
  Age: 32 Year
  Sex: Female

DRUGS (13)
  1. TECFIDERA [Suspect]
     Indication: MULTIPLE SCLEROSIS
     Dates: start: 20130619
  2. BUPROPION [Concomitant]
     Route: 048
  3. CIPROFLOXACIN [Concomitant]
     Route: 048
  4. CITALOPRAM [Concomitant]
     Route: 048
  5. CYANOCOBALAMIN [Concomitant]
     Route: 048
  6. HYDROCODONE  ACETAMINOPHEN [Concomitant]
  7. HYOSCYAMINE [Concomitant]
  8. NORETHINDRONE [Concomitant]
  9. ETHINYL ESTRADIOL [Concomitant]
  10. PANTOPRAZOLE [Concomitant]
  11. PROPRANOLOL [Concomitant]
  12. SUMATRIPTAN [Concomitant]
  13. TOPIRAMATE [Concomitant]

REACTIONS (4)
  - Multiple sclerosis relapse [Unknown]
  - Optic neuritis [Unknown]
  - Sinus bradycardia [Unknown]
  - Urinary tract infection [Recovered/Resolved]
